FAERS Safety Report 5874600-6 (Version None)
Quarter: 2008Q3

REPORT INFORMATION
  Report Type: 
  Country: None (occurrence: None)
  Receive Date: 20080905
  Receipt Date: 20080905
  Transmission Date: 20090109
  Serious: No
  Sender: FDA-Public Use
  Company Number: None

PATIENT

DRUGS (3)
  1. BUPROPION HCL [Suspect]
     Indication: ANXIETY
     Dosage: 150 MG 3 X DAY PO
     Route: 048
     Dates: start: 20071001, end: 20080131
  2. BUPROPION HCL [Suspect]
     Indication: DEPRESSION
     Dosage: 150 MG 3 X DAY PO
     Route: 048
     Dates: start: 20071001, end: 20080131
  3. BUPROPION HCL [Suspect]
     Indication: SMOKING CESSATION THERAPY
     Dosage: 150 MG 3 X DAY PO
     Route: 048
     Dates: start: 20071001, end: 20080131

REACTIONS (4)
  - DRUG INEFFECTIVE [None]
  - NAUSEA [None]
  - PAROSMIA [None]
  - PHARMACEUTICAL PRODUCT COMPLAINT [None]
